FAERS Safety Report 10700329 (Version 2)
Quarter: 2015Q1

REPORT INFORMATION
  Report Type: Report from Study
  Country: BR (occurrence: BR)
  Receive Date: 20150109
  Receipt Date: 20150209
  Transmission Date: 20150721
  Serious: Yes (Death)
  Sender: FDA-Public Use
  Company Number: PHHY2015BR001906

PATIENT
  Sex: Female
  Weight: 90 kg

DRUGS (4)
  1. GARDENAL//PHENOBARBITAL [Concomitant]
     Active Substance: PHENOBARBITAL
     Indication: PRODUCT USED FOR UNKNOWN INDICATION
     Dosage: 1 DF, QD (LONG TIME)
     Route: 065
  2. VENLIFT [Concomitant]
     Active Substance: VENLAFAXINE HYDROCHLORIDE
     Indication: DEPRESSION
     Dosage: 1 DF, QD (1 YEARS AND HALF APPROXIMATELY)
     Route: 048
  3. EXELON PATCH [Suspect]
     Active Substance: RIVASTIGMINE
     Indication: DEMENTIA ALZHEIMER^S TYPE
     Dosage: 9.5 MG, (PATCH 10 (CM2) OR CONTAINS 18 MG RIVASTIGMINE BASE / DAILY DOSE= 9.5 MG ) ON ARM
     Route: 062
  4. SEROQUEL [Concomitant]
     Active Substance: QUETIAPINE FUMARATE
     Indication: DEPRESSION
     Dosage: 1 DF, QD (START DATE APPROXIMATELY 4 YEARS AGO)
     Route: 048

REACTIONS (5)
  - Pneumonia [Fatal]
  - Respiratory failure [Fatal]
  - Weight increased [Unknown]
  - Sepsis [Fatal]
  - Dyspnoea [Fatal]
